FAERS Safety Report 10454998 (Version 3)
Quarter: 2014Q4

REPORT INFORMATION
  Report Type: Spontaneous
  Country: AU (occurrence: AU)
  Receive Date: 20140915
  Receipt Date: 20141009
  Transmission Date: 20150528
  Serious: Yes (Life-Threatening, Hospitalization, Other)
  Sender: FDA-Public Use
  Company Number: ALCN2014AU005186

PATIENT
  Sex: Female

DRUGS (1)
  1. ZADITEN [Suspect]
     Active Substance: KETOTIFEN FUMARATE
     Dosage: 1 GTT, ONCE/SINGLE
     Route: 047
     Dates: start: 20140911, end: 20140911

REACTIONS (4)
  - Brain death [Not Recovered/Not Resolved]
  - Anaphylactic reaction [Not Recovered/Not Resolved]
  - Respiratory arrest [Not Recovered/Not Resolved]
  - Respiratory tract oedema [Not Recovered/Not Resolved]

NARRATIVE: CASE EVENT DATE: 20140911
